FAERS Safety Report 9299911 (Version 2)
Quarter: 2013Q3

REPORT INFORMATION
  Report Type: Report from Study
  Country: FR (occurrence: FR)
  Receive Date: 20130521
  Receipt Date: 20130705
  Transmission Date: 20140515
  Serious: Yes (Hospitalization)
  Sender: FDA-Public Use
  Company Number: FR-ROCHE-1225732

PATIENT
  Age: 45 Year
  Sex: Male
  Weight: 85 kg

DRUGS (7)
  1. METHOXY POLYETHYLENE GLYCOL-EPOETIN BETA [Suspect]
     Indication: NEPHROGENIC ANAEMIA
     Route: 065
  2. AMLOR [Concomitant]
     Route: 048
  3. INEXIUM [Concomitant]
     Route: 048
  4. TEMERIT [Concomitant]
     Route: 048
  5. TACROLIMUS [Concomitant]
     Route: 048
  6. OFLOCET (FRANCE) [Concomitant]
  7. FOSRENOL [Concomitant]
     Route: 048

REACTIONS (1)
  - Renal impairment [Not Recovered/Not Resolved]
